FAERS Safety Report 24702606 (Version 1)
Quarter: 2024Q4

REPORT INFORMATION
  Report Type: Spontaneous
  Country: JP (occurrence: JP)
  Receive Date: 20241205
  Receipt Date: 20241205
  Transmission Date: 20250114
  Serious: Yes (Other)
  Sender: AMGEN
  Company Number: JP-AMGEN-JPNSP2024236224

PATIENT
  Age: 25 Year
  Sex: Female

DRUGS (5)
  1. BLINCYTO [Suspect]
     Active Substance: BLINATUMOMAB
     Indication: B precursor type acute leukaemia
     Dosage: UNK, DRIP INFUSION
     Route: 040
  2. MELPHALAN [Concomitant]
     Active Substance: MELPHALAN
     Dosage: 60 MILLIGRAM/SQ. METER
  3. TACROLIMUS [Concomitant]
     Active Substance: TACROLIMUS
  4. METHOTREXATE [Concomitant]
     Active Substance: METHOTREXATE
  5. TISAGENLECLEUCEL [Concomitant]
     Active Substance: TISAGENLECLEUCEL

REACTIONS (3)
  - Immune effector cell-associated neurotoxicity syndrome [Recovered/Resolved]
  - Cytokine release syndrome [Recovered/Resolved]
  - B precursor type acute leukaemia [Unknown]
